FAERS Safety Report 17420652 (Version 1)
Quarter: 2020Q1

REPORT INFORMATION
  Report Type: Spontaneous
  Country: ID (occurrence: ID)
  Receive Date: 20200214
  Receipt Date: 20200214
  Transmission Date: 20200409
  Serious: Yes (Other)
  Sender: FDA-Public Use
  Company Number: NVSC2020ID034421

PATIENT
  Age: 32 Year
  Sex: Female

DRUGS (1)
  1. NILOTINIB [Suspect]
     Active Substance: NILOTINIB
     Indication: CHRONIC MYELOID LEUKAEMIA
     Dosage: UNK
     Route: 065

REACTIONS (8)
  - Proteinuria [Unknown]
  - Albumin globulin ratio decreased [Unknown]
  - Hypertension [Unknown]
  - Nephrotic syndrome [Unknown]
  - Generalised oedema [Unknown]
  - Haemoglobin decreased [Unknown]
  - White blood cell count increased [Unknown]
  - Creatinine urine increased [Unknown]
